FAERS Safety Report 11173669 (Version 2)
Quarter: 2015Q3

REPORT INFORMATION
  Report Type: Spontaneous
  Country: TR (occurrence: TR)
  Receive Date: 20150609
  Receipt Date: 20150905
  Transmission Date: 20151125
  Serious: Yes (Hospitalization)
  Sender: FDA-Public Use
  Company Number: TR-AUROBINDO-AUR-APL-2015-04884

PATIENT
  Age: 16 Year
  Sex: Male

DRUGS (2)
  1. QUETIAPINE [Suspect]
     Active Substance: QUETIAPINE
     Indication: PRODUCT USED FOR UNKNOWN INDICATION
     Dosage: UNK
     Route: 065
  2. CARBAMAZEPINE. [Suspect]
     Active Substance: CARBAMAZEPINE
     Indication: PRODUCT USED FOR UNKNOWN INDICATION
     Route: 065

REACTIONS (18)
  - Blood urea increased [Recovered/Resolved]
  - Blood potassium increased [Recovered/Resolved]
  - Dyskinesia [Recovered/Resolved]
  - Asthenia [Recovered/Resolved]
  - Blood glucose increased [Recovered/Resolved]
  - Decreased appetite [Recovered/Resolved]
  - Blood creatine phosphokinase MB increased [Recovered/Resolved]
  - Alanine aminotransferase increased [Recovered/Resolved]
  - Rhabdomyolysis [Recovered/Resolved]
  - Chromaturia [Recovered/Resolved]
  - Blood uric acid increased [Recovered/Resolved]
  - Aspartate aminotransferase increased [Recovered/Resolved]
  - Acute kidney injury [Recovered/Resolved]
  - Blood creatine phosphokinase increased [Recovered/Resolved]
  - Blood sodium increased [Recovered/Resolved]
  - Blood phosphorus increased [Recovered/Resolved]
  - C-reactive protein increased [Recovered/Resolved]
  - Blood lactate dehydrogenase increased [Recovered/Resolved]
